FAERS Safety Report 6694063-0 (Version None)
Quarter: 2010Q2

REPORT INFORMATION
  Report Type: 
  Country: None (occurrence: None)
  Receive Date: 20100423
  Receipt Date: 20100409
  Transmission Date: 20101027
  Serious: Yes (Other)
  Sender: FDA-Public Use
  Company Number: US-ELI_LILLY_AND_COMPANY-US201004004349

PATIENT
  Sex: Female

DRUGS (2)
  1. FORTEO [Suspect]
     Indication: OSTEOPOROSIS
     Dosage: 20 UG, DAILY (1/D)
  2. ZOLOFT [Concomitant]
     Dosage: 100 MG, DAILY (1/D)

REACTIONS (14)
  - ABDOMINAL DISCOMFORT [None]
  - ARTHRITIS [None]
  - ASTHENIA [None]
  - BONE CYST [None]
  - BONE PAIN [None]
  - DEPRESSION [None]
  - FALL [None]
  - GENERAL PHYSICAL HEALTH DETERIORATION [None]
  - JAW DISORDER [None]
  - MOBILITY DECREASED [None]
  - OSTEOPOROSIS [None]
  - PATELLA FRACTURE [None]
  - POSTURE ABNORMAL [None]
  - WRIST FRACTURE [None]
